FAERS Safety Report 9378572 (Version 3)
Quarter: 2013Q3

REPORT INFORMATION
  Report Type: Spontaneous
  Country: US (occurrence: US)
  Receive Date: 20130702
  Receipt Date: 20130826
  Transmission Date: 20140515
  Serious: Yes (Hospitalization, Other)
  Sender: FDA-Public Use
  Company Number: US-AMGEN-USASP2013045825

PATIENT
  Age: 63 Year
  Sex: Female
  Weight: 91.15 kg

DRUGS (11)
  1. PROLIA [Suspect]
     Indication: OSTEOPOROSIS POSTMENOPAUSAL
     Dosage: 60 MG, Q6MO
     Route: 058
     Dates: start: 201108, end: 201306
  2. ZOCOR [Concomitant]
     Dosage: 20 MG, QD
     Route: 048
  3. PRILOSEC                           /00661201/ [Concomitant]
     Dosage: 20 MG, QD
     Route: 048
  4. ATENOLOL [Concomitant]
     Dosage: 25 MG, QD
     Route: 048
  5. PENTASA [Concomitant]
     Dosage: TWO CAPSULES TWO TIMES A DAY
     Route: 048
  6. CELEXA                             /00582602/ [Concomitant]
     Dosage: 20 MG, QD
     Route: 048
  7. FERROUS SULFATE [Concomitant]
     Dosage: 325 MG, BID
     Route: 048
  8. FERRALET                           /00023502/ [Concomitant]
     Dosage: UNK UNK, QD
     Route: 048
  9. CALCIUM 600+D                      /00944201/ [Concomitant]
     Dosage: UNK UNK, BID
     Route: 048
  10. PREDNISOLONE [Concomitant]
     Dosage: 5 MG, QD
     Route: 048
  11. XANAX [Concomitant]
     Dosage: 1/2 TABLET AT BED  TIME

REACTIONS (3)
  - Colitis ulcerative [Not Recovered/Not Resolved]
  - Colon cancer stage IV [Not Recovered/Not Resolved]
  - Metastases to liver [Unknown]
